FAERS Safety Report 6197369-7 (Version None)
Quarter: 2009Q2

REPORT INFORMATION
  Report Type: 
  Country: None (occurrence: None)
  Receive Date: 20090518
  Receipt Date: 20090512
  Transmission Date: 20091009
  Serious: Yes (Death)
  Sender: FDA-Public Use
  Company Number: 2009US001694

PATIENT
  Age: 49 Year
  Sex: Female

DRUGS (1)
  1. PROGRAF [Suspect]
     Indication: DRUG USE FOR UNKNOWN INDICATION
     Dosage: 5.5 MG, BID
     Dates: start: 20051109, end: 20090427

REACTIONS (1)
  - DEATH [None]
